FAERS Safety Report 7657423-7 (Version None)
Quarter: 2011Q3

REPORT INFORMATION
  Report Type: 
  Country: None (occurrence: None)
  Receive Date: 20110804
  Receipt Date: 20110614
  Transmission Date: 20111222
  Serious: No
  Sender: FDA-Public Use
  Company Number: US-B.I. PHARMACEUTICALS,INC./RIDGEFIELD-2010-BP-01281BP

PATIENT
  Sex: Female

DRUGS (1)
  1. MIRAPEX [Suspect]
     Indication: RESTLESS LEGS SYNDROME
     Dosage: 1 MG
     Route: 048
     Dates: start: 19990101

REACTIONS (6)
  - PATHOLOGICAL GAMBLING [None]
  - EMOTIONAL DISTRESS [None]
  - SUBSTANCE ABUSE [None]
  - COMPULSIVE SHOPPING [None]
  - PAIN [None]
  - OBSESSIVE-COMPULSIVE DISORDER [None]
